FAERS Safety Report 25504191 (Version 1)
Quarter: 2025Q3

REPORT INFORMATION
  Report Type: Spontaneous
  Country: EU (occurrence: EU)
  Receive Date: 20250702
  Receipt Date: 20250702
  Transmission Date: 20251020
  Serious: Yes (Hospitalization, Other)
  Sender: MERCK SHARP & DOHME LLC
  Company Number: None

PATIENT
  Age: 77 Year
  Sex: Male
  Weight: 73 kg

DRUGS (11)
  1. IVERMECTIN [Suspect]
     Active Substance: IVERMECTIN
     Indication: Scabies
     Route: 048
     Dates: start: 20250520
  2. Toujeo 300 U/ml Solostar [Concomitant]
     Dosage: 0-0-0-14 THIGHS
     Route: 065
  3. CREON [Concomitant]
     Active Substance: PANCRELIPASE AMYLASE\PANCRELIPASE LIPASE\PANCRELIPASE PROTEASE
     Indication: Drug therapy
     Dosage: 3-3-3-0 DURING MEALS
     Route: 065
  4. Apidra 100 U/ml SoloStar pre-filled pen [Concomitant]
     Dosage: 6-6-6-0 STOMACH, 10 MINUTES BEFORE EATING, IF NECESSARY +?CORR.
     Route: 065
  5. Cholestyramine-ratiopharm [Concomitant]
     Indication: Drug therapy
     Dosage: 1-1-1-0
     Route: 065
  6. Rami Dipin 10 mg/10 mg hard capsules [Concomitant]
     Indication: Essential hypertension
     Dosage: 1-0-0-0?= TONOTEC
     Route: 065
  7. Bisoprolol - 1A Pharma 2.5 mg film-coated tablets [Concomitant]
     Indication: Pulse abnormal
     Dosage: 1-0-0-0
     Route: 065
  8. EDOXABAN TOSYLATE [Concomitant]
     Active Substance: EDOXABAN TOSYLATE
     Indication: Atrial fibrillation
     Dosage: 1-0-0-0
     Route: 065
  9. Furosemide ratiopharm 40mg tablets [Concomitant]
     Indication: Diuretic therapy
     Route: 065
  10. Novaminsulfon Lichtenstein 500mg [Concomitant]
     Indication: Pain
     Route: 065
  11. AMILORIDE\BENDROFLUMETHIAZIDE [Concomitant]
     Active Substance: AMILORIDE\BENDROFLUMETHIAZIDE
     Indication: Essential hypertension
     Dosage: 0.5-0-0-0
     Route: 065

REACTIONS (6)
  - Cholestasis [Unknown]
  - Jaundice cholestatic [Not Recovered/Not Resolved]
  - Cholangitis [Unknown]
  - Hepatitis acute [Not Recovered/Not Resolved]
  - Hepatic enzyme increased [Not Recovered/Not Resolved]
  - Hyperbilirubinaemia [Not Recovered/Not Resolved]
